FAERS Safety Report 23814288 (Version 1)
Quarter: 2024Q2

REPORT INFORMATION
  Report Type: Spontaneous
  Country: US (occurrence: US)
  Receive Date: 20240503
  Receipt Date: 20240503
  Transmission Date: 20240716
  Serious: Yes (Life-Threatening, Hospitalization, Other)
  Sender: FDA-Public Use
  Company Number: US-SUN PHARMACEUTICAL INDUSTRIES LTD-2024R1-444356

PATIENT
  Age: 3 Year
  Sex: Male

DRUGS (4)
  1. ACYCLOVIR [Suspect]
     Active Substance: ACYCLOVIR
     Indication: Meningitis
     Dosage: UNK
     Route: 065
  2. CEFEPIME [Suspect]
     Active Substance: CEFEPIME HYDROCHLORIDE
     Indication: Meningitis
     Dosage: UNK
     Route: 065
  3. LEVETIRACETAM [Suspect]
     Active Substance: LEVETIRACETAM
     Indication: Seizure
     Dosage: UNK
     Route: 065
  4. VANCOMYCIN [Suspect]
     Active Substance: VANCOMYCIN
     Indication: Meningitis
     Dosage: UNK
     Route: 065

REACTIONS (1)
  - Condition aggravated [Unknown]
